FAERS Safety Report 4499023-6 (Version None)
Quarter: 2004Q4

REPORT INFORMATION
  Report Type: 
  Country: None (occurrence: None)
  Receive Date: 20040927
  Receipt Date: 20040601
  Transmission Date: 20050328
  Serious: No
  Sender: FDA-Public Use
  Company Number: USA040668929

PATIENT
  Age: 8 Year
  Sex: Male
  Weight: 30 kg

DRUGS (1)
  1. STRATTERA [Suspect]
     Dosage: 40 MG IN THE EVENING
     Dates: start: 20040525

REACTIONS (5)
  - DIARRHOEA [None]
  - FATIGUE [None]
  - INITIAL INSOMNIA [None]
  - PROCTALGIA [None]
  - SOMNOLENCE [None]
